FAERS Safety Report 11968813 (Version 1)
Quarter: 2016Q1

REPORT INFORMATION
  Report Type: Spontaneous
  Country: US (occurrence: None)
  Receive Date: 20160126
  Receipt Date: 20160126
  Transmission Date: 20160526
  Serious: Yes (Death)
  Sender: FDA-Public Use
  Company Number: None

PATIENT
  Age: 68 Year
  Sex: Female

DRUGS (2)
  1. CAPECITABINE 150MG [Suspect]
     Active Substance: CAPECITABINE
     Indication: PANCREATIC CARCINOMA
     Dosage: 300MG BID X 14 DAYS PO
     Route: 048
     Dates: start: 20151215, end: 20160105
  2. CAPECITABINE 500MG [Suspect]
     Active Substance: CAPECITABINE
     Dosage: 1000MG BID X 14 DAYS PO
     Route: 048
     Dates: start: 20151215, end: 20160105

REACTIONS (1)
  - Death [None]

NARRATIVE: CASE EVENT DATE: 20160105
